FAERS Safety Report 6357021-1 (Version None)
Quarter: 2009Q3

REPORT INFORMATION
  Report Type: 
  Country: None (occurrence: None)
  Receive Date: 20090915
  Receipt Date: 20081030
  Transmission Date: 20100115
  Serious: No
  Sender: FDA-Public Use
  Company Number: US-ABBOTT-08P-163-0485197-00

PATIENT
  Age: 49 Year

DRUGS (1)
  1. DEPAKOTE [Suspect]
     Indication: ABNORMAL BEHAVIOUR

REACTIONS (1)
  - GENERAL PHYSICAL HEALTH DETERIORATION [None]
